FAERS Safety Report 6388019-5 (Version None)
Quarter: 2009Q4

REPORT INFORMATION
  Report Type: 
  Country: None (occurrence: None)
  Receive Date: 20091005
  Receipt Date: 20090928
  Transmission Date: 20100525
  Serious: Yes (Hospitalization)
  Sender: FDA-Public Use
  Company Number: JP-PFIZER INC-2009276094

PATIENT
  Age: 52 Year

DRUGS (7)
  1. ATARAX [Suspect]
     Dosage: 25 MG, DAILY
     Route: 048
     Dates: start: 20090905, end: 20090913
  2. RINDERON [Suspect]
     Route: 048
     Dates: start: 20090903, end: 20090913
  3. ZYRTEC [Suspect]
     Dosage: 20 MG, DAILY
     Route: 048
     Dates: start: 20090827, end: 20090904
  4. MYSLEE [Suspect]
     Dosage: 10 MG, DAILY
     Route: 048
     Dates: start: 20090826, end: 20090913
  5. ALLEGRA [Suspect]
     Dosage: 240 MG, DAILY
     Route: 048
     Dates: start: 20090825, end: 20090913
  6. FAMOTIDINE [Suspect]
     Dates: start: 20090823, end: 20090902
  7. PREDNISOLONE [Concomitant]

REACTIONS (1)
  - HEPATITIS [None]
